FAERS Safety Report 8625967-7 (Version None)
Quarter: 2012Q3

REPORT INFORMATION
  Report Type: 
  Country: None (occurrence: None)
  Receive Date: 20120827
  Receipt Date: 20120817
  Transmission Date: 20120928
  Serious: Yes (Other)
  Sender: FDA-Public Use
  Company Number: US-ASTRAZENECA-2012SE60191

PATIENT
  Age: 59 Year
  Sex: Female

DRUGS (2)
  1. SEROQUEL [Suspect]
     Indication: BIPOLAR DISORDER
     Route: 048
  2. SEROQUEL [Suspect]
     Indication: BIPOLAR I DISORDER
     Route: 048

REACTIONS (7)
  - IMPAIRED WORK ABILITY [None]
  - SUICIDAL IDEATION [None]
  - DRUG DOSE OMISSION [None]
  - BRAIN INJURY [None]
  - LUNG NEOPLASM [None]
  - BRAIN NEOPLASM MALIGNANT [None]
  - FALL [None]
